FAERS Safety Report 7946918-4 (Version None)
Quarter: 2011Q4

REPORT INFORMATION
  Report Type: 
  Country: None (occurrence: None)
  Receive Date: 20111129
  Receipt Date: 20111122
  Transmission Date: 20120403
  Serious: Yes (Hospitalization, Other)
  Sender: FDA-Public Use
  Company Number: PHEH2010US03510

PATIENT
  Sex: Male

DRUGS (19)
  1. ZOMETA [Suspect]
     Indication: BONE DISORDER
     Dosage: 4 MG, MONTHLY
     Dates: end: 20080401
  2. WARFARIN SODIUM [Concomitant]
  3. GEMFIBROZIL [Concomitant]
  4. NOVOLOG [Concomitant]
  5. MOTRIN [Concomitant]
  6. NIASPAN [Concomitant]
  7. GLYBURIDE [Concomitant]
  8. OMEPRAZOLE [Concomitant]
  9. RADIATION THERAPY [Concomitant]
  10. CHEMOTHERAPEUTICS [Concomitant]
  11. PENICILLIN [Concomitant]
  12. ASPIRIN [Concomitant]
  13. METOPROLOL TARTRATE [Concomitant]
  14. MECLIZINE [Concomitant]
  15. METFORMIN HCL [Concomitant]
  16. AVANDIA [Concomitant]
  17. LANTUS [Concomitant]
  18. AMITRIPTYLINE HCL [Concomitant]
  19. ACCURETIC [Concomitant]

REACTIONS (52)
  - HEART RATE IRREGULAR [None]
  - ANAEMIA [None]
  - NEPHROLITHIASIS [None]
  - SEPSIS [None]
  - HYPONATRAEMIA [None]
  - HAEMORRHAGE URINARY TRACT [None]
  - PROSTATITIS [None]
  - ATELECTASIS [None]
  - SPLENOMEGALY [None]
  - NEUROPATHY PERIPHERAL [None]
  - PARTNER STRESS [None]
  - PROSTATOMEGALY [None]
  - URETHRAL STENOSIS [None]
  - INTERVERTEBRAL DISC SPACE NARROWING [None]
  - TRICUSPID VALVE INCOMPETENCE [None]
  - THROMBOCYTOPENIA [None]
  - FALL [None]
  - INTERVERTEBRAL DISC DEGENERATION [None]
  - PAIN [None]
  - DEFORMITY [None]
  - METASTASES TO LUNG [None]
  - HYPOAESTHESIA [None]
  - BACK PAIN [None]
  - POLYDIPSIA [None]
  - SLEEP APNOEA SYNDROME [None]
  - INFECTION [None]
  - LYMPHOMA [None]
  - DYSURIA [None]
  - METASTASES TO SPINE [None]
  - NEOPLASM MALIGNANT [None]
  - RADICULOPATHY [None]
  - ARTHRALGIA [None]
  - OSTEOLYSIS [None]
  - HYPOTENSION [None]
  - URINARY TRACT INFECTION [None]
  - BRONCHITIS [None]
  - MUSCLE SPASMS [None]
  - PNEUMONIA [None]
  - HAEMATURIA [None]
  - HEPATOMEGALY [None]
  - LEFT VENTRICULAR HYPERTROPHY [None]
  - PARAESTHESIA [None]
  - TESTICULAR MASS [None]
  - MUSCULOSKELETAL CHEST PAIN [None]
  - ABDOMINAL PAIN [None]
  - WEIGHT DECREASED [None]
  - HODGKIN'S DISEASE STAGE IV [None]
  - PALPITATIONS [None]
  - OSTEONECROSIS OF JAW [None]
  - OVERDOSE [None]
  - NASAL ULCER [None]
  - UPPER RESPIRATORY TRACT INFECTION [None]
